FAERS Safety Report 6814506-9 (Version None)
Quarter: 2010Q3

REPORT INFORMATION
  Report Type: 
  Country: None (occurrence: None)
  Receive Date: 20100702
  Receipt Date: 20100426
  Transmission Date: 20110219
  Serious: No
  Sender: FDA-Public Use
  Company Number: US-BRISTOL-MYERS SQUIBB COMPANY-15059785

PATIENT
  Age: 6 Year
  Sex: Male

DRUGS (1)
  1. ABILIFY [Suspect]
     Indication: ABNORMAL BEHAVIOUR
     Dosage: 1DF-10MG HALF TABLET (TO EQUAL 5MG) THERAPY RESTARTED 4 TO 5 DAYS AGO;INTERR:31MAR10;RESTART:8APR10
     Route: 048
     Dates: start: 20100217, end: 20100413

REACTIONS (2)
  - ABDOMINAL DISTENSION [None]
  - DIARRHOEA [None]
